FAERS Safety Report 23449359 (Version 3)
Quarter: 2024Q2

REPORT INFORMATION
  Report Type: Report from Study
  Country: US (occurrence: US)
  Receive Date: 20240129
  Receipt Date: 20240404
  Transmission Date: 20240716
  Serious: Yes (Hospitalization)
  Sender: FDA-Public Use
  Company Number: US-ACADIA PHARMACEUTICALS INC.-ACA-2023-TRF-004701

PATIENT
  Age: 12 Year
  Sex: Female

DRUGS (7)
  1. DAYBUE [Suspect]
     Active Substance: TROFINETIDE
     Indication: Rett syndrome
     Dosage: 40 MILLILITER, BID
     Route: 048
     Dates: end: 20230925
  2. DAYBUE [Suspect]
     Active Substance: TROFINETIDE
     Dosage: 40 MILLILITER, BID
     Route: 048
     Dates: start: 20230930
  3. DAYBUE [Suspect]
     Active Substance: TROFINETIDE
     Dosage: 40 MILLILITER, BID
     Route: 048
     Dates: start: 202312
  4. DEPAKOTE [Concomitant]
     Active Substance: DIVALPROEX SODIUM
  5. VIMPAT [Concomitant]
     Active Substance: LACOSAMIDE
  6. CLONAZEPAM [Concomitant]
     Active Substance: CLONAZEPAM
  7. VALTOCO [Concomitant]
     Active Substance: DIAZEPAM
     Dosage: PRN

REACTIONS (5)
  - COVID-19 [Recovered/Resolved]
  - Rhinovirus infection [Unknown]
  - Enterovirus infection [Unknown]
  - Viral upper respiratory tract infection [Unknown]
  - Ear infection viral [Unknown]

NARRATIVE: CASE EVENT DATE: 20230923
